FAERS Safety Report 15706937 (Version 2)
Quarter: 2019Q1

REPORT INFORMATION
  Report Type: Spontaneous
  Country: US (occurrence: US)
  Receive Date: 20181210
  Receipt Date: 20190309
  Transmission Date: 20190417
  Serious: Yes (Other)
  Sender: FDA-Public Use
  Company Number: PHEH2018US051816

PATIENT
  Age: 50 Year
  Sex: Male

DRUGS (1)
  1. TASIGNA [Suspect]
     Active Substance: NILOTINIB
     Indication: CHRONIC MYELOID LEUKAEMIA
     Dosage: 2 DF, BID
     Route: 048
     Dates: start: 20110113, end: 20171221

REACTIONS (21)
  - Peripheral arterial occlusive disease [Unknown]
  - Pain in extremity [Unknown]
  - Peripheral swelling [Unknown]
  - Intermittent claudication [Unknown]
  - Perirectal abscess [Unknown]
  - Vascular graft occlusion [Unknown]
  - Hepatic enzyme increased [Unknown]
  - Respiratory failure [Unknown]
  - Peripheral vascular disorder [Unknown]
  - Arteriosclerosis [Unknown]
  - Transplant failure [Unknown]
  - Pruritus [Unknown]
  - Oedema peripheral [Unknown]
  - Cellulitis [Unknown]
  - Cardiovascular disorder [Unknown]
  - Limb discomfort [Unknown]
  - Hyperglycaemia [Unknown]
  - Skin ulcer [Unknown]
  - Hypoxia [Unknown]
  - Interstitial lung disease [Unknown]
  - Stenosis [Unknown]

NARRATIVE: CASE EVENT DATE: 20140131
